FAERS Safety Report 15370594 (Version 2)
Quarter: 2018Q3

REPORT INFORMATION
  Report Type: Spontaneous
  Country: US (occurrence: US)
  Receive Date: 20180911
  Receipt Date: 20180921
  Transmission Date: 20181010
  Serious: No
  Sender: FDA-Public Use
  Company Number: US-STRONGBRIDGE BIOPHARMA-2018-STR-000299

PATIENT
  Age: 52 Year
  Sex: Female

DRUGS (1)
  1. KEVEYIS [Suspect]
     Active Substance: DICHLORPHENAMIDE
     Indication: FAMILIAL PERIODIC PARALYSIS
     Dosage: UNK

REACTIONS (5)
  - Disease recurrence [Unknown]
  - Pruritus [Unknown]
  - Paraesthesia [Unknown]
  - Insomnia [Unknown]
  - Asthenopia [Unknown]

NARRATIVE: CASE EVENT DATE: 20180911
